FAERS Safety Report 7898608-4 (Version None)
Quarter: 2011Q4

REPORT INFORMATION
  Report Type: 
  Country: None (occurrence: None)
  Receive Date: 20111107
  Receipt Date: 20111107
  Transmission Date: 20120403
  Serious: Yes (Death)
  Sender: FDA-Public Use
  Company Number: None

PATIENT
  Age: 78 Year
  Sex: Female
  Weight: 80 kg

DRUGS (14)
  1. ASPIRIN [Concomitant]
     Route: 048
  2. FLUTICASONE PROPIONATE [Concomitant]
     Route: 045
  3. RAMIPRIL [Concomitant]
     Route: 048
  4. FISH OIL [Concomitant]
     Route: 048
  5. DABIGATRAN [Suspect]
     Indication: ATRIAL FIBRILLATION
     Dosage: 150 MG
     Route: 048
     Dates: start: 20110329, end: 20111009
  6. ALBUTEROL [Concomitant]
  7. DABIGATRAN [Concomitant]
     Route: 048
  8. PROPAFENONE HCL [Concomitant]
     Route: 048
  9. VITAMIN D [Concomitant]
     Route: 048
  10. MIRALAX [Concomitant]
     Route: 048
  11. SPIRIVA [Concomitant]
  12. FUROSEMIDE [Concomitant]
     Route: 048
  13. DOXEPIN [Concomitant]
     Route: 048
  14. BONIVA [Concomitant]
     Route: 048

REACTIONS (9)
  - HYPOGLYCAEMIA [None]
  - PULMONARY HAEMORRHAGE [None]
  - DIALYSIS [None]
  - GASTROINTESTINAL HAEMORRHAGE [None]
  - RENAL FAILURE ACUTE [None]
  - RESPIRATORY FAILURE [None]
  - HYPOTENSION [None]
  - COAGULOPATHY [None]
  - DIARRHOEA [None]
